FAERS Safety Report 16015365 (Version 1)
Quarter: 2019Q1

REPORT INFORMATION
  Report Type: Report from Study
  Country: DE (occurrence: DE)
  Receive Date: 20190228
  Receipt Date: 20190228
  Transmission Date: 20190418
  Serious: Yes (Other)
  Sender: FDA-Public Use
  Company Number: DE-ROCHE-2273469

PATIENT
  Age: 61 Year
  Sex: Female

DRUGS (4)
  1. BEVACIZUMAB. [Suspect]
     Active Substance: BEVACIZUMAB
     Indication: BREAST CANCER
     Route: 065
     Dates: start: 20100420
  2. DOCETAXEL. [Concomitant]
     Active Substance: DOCETAXEL
     Indication: BREAST CANCER
     Dosage: SUBSEQUENT DOSES RECEIVED ON 11/MAY/2010, 01/JUN/2010, 22/JUN/2010, 18/AUG/2010, 08/SEP/2010 AND 29/
     Route: 065
     Dates: start: 20100420
  3. BISOPROLOL [Concomitant]
     Active Substance: BISOPROLOL
     Route: 065
     Dates: start: 20000901
  4. BEVACIZUMAB. [Suspect]
     Active Substance: BEVACIZUMAB
     Route: 065
     Dates: start: 20101108

REACTIONS (1)
  - Necrotising oesophagitis [Unknown]

NARRATIVE: CASE EVENT DATE: 20101109
